FAERS Safety Report 9519075 (Version 2)
Quarter: 2013Q3

REPORT INFORMATION
  Report Type: Spontaneous
  Country: US (occurrence: US)
  Receive Date: 20130912
  Receipt Date: 20130918
  Transmission Date: 20140515
  Serious: No
  Sender: FDA-Public Use
  Company Number: US-RB-057783-13

PATIENT
  Age: 6 Year
  Sex: Female

DRUGS (1)
  1. DELSYM [Suspect]
     Indication: COUGH
     Dosage: TOTAL OF 3 DOSES OVER 2 DAYS
     Route: 048

REACTIONS (3)
  - Agitation [Recovered/Resolved]
  - Psychomotor hyperactivity [Recovered/Resolved]
  - Unevaluable event [Recovered/Resolved]
